FAERS Safety Report 5196227-4 (Version None)
Quarter: 2006Q4

REPORT INFORMATION
  Report Type: 
  Country: None (occurrence: None)
  Receive Date: 20061222
  Receipt Date: 20061207
  Transmission Date: 20070319
  Serious: Yes (Hospitalization)
  Sender: FDA-Public Use
  Company Number: 2006001764

PATIENT
  Age: 72 Year
  Sex: Female

DRUGS (13)
  1. ERLOTINIB(TABLET) [Suspect]
     Indication: PANCREATIC CARCINOMA METASTATIC
     Dosage: 100 MG (QD), ORAL
     Route: 048
     Dates: start: 20060705
  2. BEVACIZUMAB / PLACEBO (INJECTION FOR INFUSION) [Suspect]
     Indication: PANCREATIC CARCINOMA
     Dosage: (Q2W), INTRAVENOUS
     Route: 042
     Dates: start: 20060705, end: 20060705
  3. ASPIRIN [Concomitant]
  4. NEXIUM [Concomitant]
  5. SIMVAHEXAL (SIMVASTATIN) [Concomitant]
  6. GEMCITABINE [Suspect]
     Indication: PANCREATIC CARCINOMA METASTATIC
     Dosage: 1762 MG/M^2 (QW), INTRAVENOUS
     Route: 042
     Dates: start: 20060705
  7. XANEF (ENALAPRIL MALEATE) [Concomitant]
  8. UNAT (TORASEMIDE) [Concomitant]
  9. SPIRONOLACTONE [Concomitant]
  10. BERLTHYROX (LEVOTHYROXINE SODIUM) [Concomitant]
  11. DURAGESIC-100 [Concomitant]
  12. ACTRAPID (INSULIN) [Concomitant]
  13. LANTUS [Concomitant]

REACTIONS (8)
  - ANAEMIA [None]
  - CONDITION AGGRAVATED [None]
  - DISEASE PROGRESSION [None]
  - DYSPNOEA [None]
  - EPISTAXIS [None]
  - PANCREATIC CARCINOMA METASTATIC [None]
  - PLEURAL EFFUSION [None]
  - PNEUMOTHORAX [None]
